FAERS Safety Report 11903707 (Version 2)
Quarter: 2016Q1

REPORT INFORMATION
  Report Type: Spontaneous
  Country: US (occurrence: US)
  Receive Date: 20160108
  Receipt Date: 20160129
  Transmission Date: 20160526
  Serious: Yes (Death)
  Sender: FDA-Public Use
  Company Number: US-SPECTRUM PHARMACEUTICALS, INC.-15-F-US-00493

PATIENT
  Age: 48 Year
  Sex: Male

DRUGS (1)
  1. FUSILEV [Suspect]
     Active Substance: LEVOLEUCOVORIN CALCIUM
     Indication: RECTOSIGMOID CANCER
     Dosage: 350 MG, Q3W
     Route: 042
     Dates: start: 20150623, end: 20151027

REACTIONS (1)
  - Death [Fatal]

NARRATIVE: CASE EVENT DATE: 20151210
